FAERS Safety Report 15946872 (Version 1)
Quarter: 2019Q1

REPORT INFORMATION
  Report Type: Spontaneous
  Country: DE (occurrence: DE)
  Receive Date: 20190211
  Receipt Date: 20190211
  Transmission Date: 20190417
  Serious: Yes (Hospitalization)
  Sender: FDA-Public Use
  Company Number: DE-TEVA-2019-DE-1009597

PATIENT
  Age: 60 Year
  Sex: Male

DRUGS (4)
  1. ZUCLOPENTHIXOL 12.5 MG [Suspect]
     Active Substance: ZUCLOPENTHIXOL
     Route: 065
  2. LEVOMEPROMAZIN 25 MG [Suspect]
     Active Substance: LEVOMEPROMAZINE
     Route: 065
  3. CARBADURA 300 MG RETARD [Suspect]
     Active Substance: CARBAMAZEPINE
     Route: 065
  4. RISPERIDON 1 MG/ML PCH, DRANK [Suspect]
     Active Substance: RISPERIDONE

REACTIONS (2)
  - Mydriasis [Recovering/Resolving]
  - Loss of consciousness [Recovered/Resolved]
